FAERS Safety Report 4372781-7 (Version None)
Quarter: 2004Q2

REPORT INFORMATION
  Report Type: 
  Country: None (occurrence: None)
  Receive Date: 20040602
  Receipt Date: 20040429
  Transmission Date: 20050107
  Serious: No
  Sender: FDA-Public Use
  Company Number: 200417775BWH

PATIENT
  Age: 71 Year
  Sex: Male

DRUGS (1)
  1. LEVITRA [Suspect]
     Dosage: 10-20 MG, TOTAL DAILY, ORAL
     Route: 048

REACTIONS (1)
  - EJACULATION DISORDER [None]
